FAERS Safety Report 17529017 (Version 1)
Quarter: 2020Q1

REPORT INFORMATION
  Report Type: Spontaneous
  Country: FI (occurrence: FI)
  Receive Date: 20200312
  Receipt Date: 20200312
  Transmission Date: 20200409
  Serious: Yes (Hospitalization)
  Sender: FDA-Public Use
  Company Number: FI-AUROBINDO-AUR-APL-2020-012406

PATIENT
  Age: 27 Year
  Sex: Male

DRUGS (4)
  1. OLANZAPINE ORION [Suspect]
     Active Substance: OLANZAPINE
     Indication: SCHIZOPHRENIA
     Dosage: UNK
     Route: 048
     Dates: start: 20170919
  2. NORSPAN [Concomitant]
     Active Substance: BUPRENORPHINE
     Indication: PAIN
     Dosage: UNK
     Route: 062
  3. TEMESTA [Concomitant]
     Indication: ANXIETY
     Dosage: UNK, AS NECESSARY
     Route: 048
  4. BRINTELLIX [Concomitant]
     Active Substance: VORTIOXETINE HYDROBROMIDE
     Indication: ANXIETY
     Dosage: 10 MILLIGRAM, DAILY
     Route: 048
     Dates: start: 20170928

REACTIONS (9)
  - Dyskinesia [Unknown]
  - Hyperhidrosis [Unknown]
  - Speech disorder [Unknown]
  - Dysphagia [Unknown]
  - Tremor [Unknown]
  - Blood creatine phosphokinase increased [Unknown]
  - Thyroxine free increased [Unknown]
  - Muscle twitching [Unknown]
  - Musculoskeletal stiffness [Unknown]

NARRATIVE: CASE EVENT DATE: 2017
